FAERS Safety Report 6122859-2 (Version None)
Quarter: 2009Q1

REPORT INFORMATION
  Report Type: 
  Country: None (occurrence: None)
  Receive Date: 20090318
  Receipt Date: 20090311
  Transmission Date: 20090719
  Serious: Yes (Other)
  Sender: FDA-Public Use
  Company Number: B0564437A

PATIENT
  Age: 59 Year
  Sex: Male

DRUGS (2)
  1. VENTOLIN [Suspect]
     Indication: BRONCHOSPASM
     Route: 042
     Dates: start: 20090303, end: 20090303
  2. ATROVENT [Suspect]
     Indication: BRONCHOSPASM
     Route: 042
     Dates: start: 20090303, end: 20090303

REACTIONS (4)
  - BLOOD CREATININE INCREASED [None]
  - HYPOKALAEMIA [None]
  - INCORRECT ROUTE OF DRUG ADMINISTRATION [None]
  - SINUS TACHYCARDIA [None]
